FAERS Safety Report 18651985 (Version 2)
Quarter: 2021Q1

REPORT INFORMATION
  Report Type: Spontaneous
  Country: JP (occurrence: JP)
  Receive Date: 20201223
  Receipt Date: 20210129
  Transmission Date: 20210419
  Serious: Yes (Other)
  Sender: FDA-Public Use
  Company Number: JP-REGENERON PHARMACEUTICALS, INC.-2020-96174

PATIENT

DRUGS (2)
  1. EYLEA [Suspect]
     Active Substance: AFLIBERCEPT
     Indication: DIABETIC RETINAL OEDEMA
     Dosage: 0.05ML,ONCE(BOTH EYES)
     Route: 031
     Dates: start: 20201109, end: 20201109
  2. EYLEA [Suspect]
     Active Substance: AFLIBERCEPT
     Dosage: 0.05ML,ONCE(RIGHT EYE)
     Route: 031
     Dates: start: 20201211, end: 20201211

REACTIONS (1)
  - Retinal artery occlusion [Recovered/Resolved]

NARRATIVE: CASE EVENT DATE: 20201211
